FAERS Safety Report 25570912 (Version 2)
Quarter: 2025Q3

REPORT INFORMATION
  Report Type: Spontaneous
  Country: US (occurrence: US)
  Receive Date: 20250717
  Receipt Date: 20250731
  Transmission Date: 20251020
  Serious: Yes (Hospitalization, Other)
  Sender: TEVA
  Company Number: US-TEVA-VS-3349829

PATIENT
  Age: 57 Year
  Sex: Female

DRUGS (4)
  1. PREDNISONE [Suspect]
     Active Substance: PREDNISONE
     Indication: Immunosuppressant drug therapy
     Route: 048
  2. TACROLIMUS [Suspect]
     Active Substance: TACROLIMUS
     Indication: Immunosuppressant drug therapy
     Route: 065
  3. AMPHOTERICIN B [Suspect]
     Active Substance: AMPHOTERICIN B
     Indication: Cryptococcal fungaemia
     Route: 042
  4. GANCICLOVIR [Concomitant]
     Active Substance: GANCICLOVIR
     Indication: Evidence based treatment
     Dosage: 2 MG/0.1 ML
     Route: 065

REACTIONS (7)
  - Cryptococcal fungaemia [Unknown]
  - Cytomegalovirus infection [Unknown]
  - Drug-induced liver injury [Unknown]
  - Meningitis cryptococcal [Unknown]
  - Pneumonia cryptococcal [Unknown]
  - Endophthalmitis [Recovering/Resolving]
  - Eye infection toxoplasmal [Recovering/Resolving]
